FAERS Safety Report 5674530-9 (Version None)
Quarter: 2008Q2

REPORT INFORMATION
  Report Type: 
  Country: None (occurrence: None)
  Receive Date: 20080303
  Receipt Date: 20070724
  Transmission Date: 20081010
  Serious: Yes (Other)
  Sender: FDA-Public Use
  Company Number: MK-6036312

PATIENT
  Age: 22 Year
  Sex: Male

DRUGS (2)
  1. AMNESTEEM [Suspect]
     Dosage: 40 MG;DAILY;ORAL ; 20 MG;DAILY;ORAL
     Route: 048
     Dates: start: 20060623, end: 20060821
  2. AMNESTEEM [Suspect]
     Dosage: 40 MG;DAILY;ORAL ; 20 MG;DAILY;ORAL
     Route: 048
     Dates: start: 20060821, end: 20060825

REACTIONS (1)
  - HYPERTRIGLYCERIDAEMIA [None]
